FAERS Safety Report 4554464-3 (Version None)
Quarter: 2005Q1

REPORT INFORMATION
  Report Type: 
  Country: None (occurrence: None)
  Receive Date: 20050114
  Receipt Date: 20041007
  Transmission Date: 20050727
  Serious: Yes (Hospitalization)
  Sender: FDA-Public Use
  Company Number: GXKR2004FR00618

PATIENT
  Age: 24 Year
  Sex: Male

DRUGS (1)
  1. PARACETAMOL+CODEINE (NGX) (ACETAMINOPHEN (PARACETAMOL), CODEINE PHOSPH [Suspect]
     Indication: HEADACHE
     Dosage: SEE IMAGE
     Route: 048

REACTIONS (2)
  - DRUG INTERACTION [None]
  - PANCREATITIS ACUTE [None]
